FAERS Safety Report 7298535-X (Version None)
Quarter: 2011Q1

REPORT INFORMATION
  Report Type: 
  Country: None (occurrence: None)
  Receive Date: 20110217
  Receipt Date: 20110214
  Transmission Date: 20110831
  Serious: Yes (Other)
  Sender: FDA-Public Use
  Company Number: US-JNJFOC-20100804640

PATIENT
  Sex: Male

DRUGS (3)
  1. LEVAQUIN [Suspect]
     Indication: PRODUCT USED FOR UNKNOWN INDICATION
     Route: 048
  2. LEVAQUIN [Suspect]
     Indication: UPPER RESPIRATORY TRACT INFECTION
     Route: 065
  3. LEVAQUIN [Suspect]
     Indication: PHARYNGITIS
     Route: 065

REACTIONS (3)
  - TENDON DISORDER [None]
  - ROTATOR CUFF SYNDROME [None]
  - JOINT INJURY [None]
